FAERS Safety Report 7476922-4 (Version None)
Quarter: 2011Q2

REPORT INFORMATION
  Report Type: 
  Country: None (occurrence: None)
  Receive Date: 20110512
  Receipt Date: 20110510
  Transmission Date: 20111010
  Serious: Yes (Other)
  Sender: FDA-Public Use
  Company Number: US-BAYER-2011-040094

PATIENT
  Sex: Male

DRUGS (1)
  1. BETAPACE [Suspect]

REACTIONS (1)
  - AMYLOIDOSIS [None]
